FAERS Safety Report 14358776 (Version 5)
Quarter: 2020Q1

REPORT INFORMATION
  Report Type: Spontaneous
  Country: US (occurrence: US)
  Receive Date: 20180105
  Receipt Date: 20200313
  Transmission Date: 20200409
  Serious: No
  Sender: FDA-Public Use
  Company Number: US-SA-2017SA255974

PATIENT
  Age: 57 Year
  Sex: Female

DRUGS (1)
  1. DUPIXENT [Suspect]
     Active Substance: DUPILUMAB
     Indication: DERMATITIS ATOPIC
     Dosage: 3 DF,QOW
     Route: 058
     Dates: start: 20170915

REACTIONS (7)
  - Joint swelling [Unknown]
  - Dermatitis atopic [Unknown]
  - Alopecia [Unknown]
  - Stress [Unknown]
  - Influenza [Unknown]
  - Gait disturbance [Unknown]
  - Anxiety [Unknown]

NARRATIVE: CASE EVENT DATE: 2017
